FAERS Safety Report 8606973-5 (Version None)
Quarter: 2012Q3

REPORT INFORMATION
  Report Type: 
  Country: None (occurrence: None)
  Receive Date: 20120820
  Receipt Date: 20120808
  Transmission Date: 20120928
  Serious: Yes (Hospitalization, Other)
  Sender: FDA-Public Use
  Company Number: US-PFIZER INC-2012062045

PATIENT
  Age: 34 Year
  Sex: Male
  Weight: 124 kg

DRUGS (17)
  1. DILANTIN [Suspect]
     Indication: CONVULSION PROPHYLAXIS
     Dosage: 200 MG, 2X/DAY
     Route: 042
     Dates: start: 20110120, end: 20110120
  2. BENADRYL [Concomitant]
     Dosage: UNK, 4 TABLETS
     Dates: start: 20110120
  3. INSULIN [Concomitant]
     Dosage: 6 UNITS
     Route: 058
     Dates: start: 20110121
  4. DECADRON PHOSPHATE [Concomitant]
     Dosage: 4 MG, 4X/DAY
     Route: 042
     Dates: start: 20110121
  5. PRILOSEC [Concomitant]
     Dosage: 20 MG, DAILY
     Route: 048
     Dates: start: 20110121
  6. PROTONIX [Concomitant]
     Dosage: 40 MG, UNK
     Route: 042
     Dates: start: 20110121
  7. DILANTIN [Suspect]
     Dosage: 500 MG, UNK
     Route: 048
     Dates: start: 20110124, end: 20110124
  8. HYDROMORPHONE [Concomitant]
     Dosage: 0.5 MG, UNK
     Route: 042
     Dates: start: 20110120
  9. VANCOMYCIN [Concomitant]
     Dosage: 1000 MG, UNK
     Route: 042
     Dates: start: 20110120
  10. MORPHINE [Concomitant]
     Dosage: 2 MG, UNK
     Route: 042
     Dates: start: 20110120
  11. DILANTIN [Suspect]
     Dosage: 200 MG, 2X/DAY
     Route: 048
     Dates: start: 20110121, end: 20110126
  12. DILANTIN [Suspect]
     Dosage: 100 MG, 3X/DAY
     Route: 048
     Dates: start: 20110127, end: 20110210
  13. TYLENOL [Concomitant]
     Dosage: 650 MG, EVERY 4 HRS
     Route: 048
     Dates: start: 20110121
  14. MAXIPIME [Concomitant]
     Dosage: 2 MG, 3X/DAY
     Route: 042
     Dates: start: 20110121
  15. PAXIL [Concomitant]
     Dosage: DAILY
     Route: 048
     Dates: start: 20110120
  16. NORCO [Concomitant]
     Indication: PAIN
     Dosage: AS NEEDED
     Route: 048
     Dates: start: 20110120
  17. HYDROXYZINE [Concomitant]
     Dosage: UNK
     Dates: start: 20110120

REACTIONS (1)
  - STEVENS-JOHNSON SYNDROME [None]
